FAERS Safety Report 23153133 (Version 3)
Quarter: 2024Q4

REPORT INFORMATION
  Report Type: Report from Study
  Country: CA (occurrence: CA)
  Receive Date: 20231107
  Receipt Date: 20241219
  Transmission Date: 20250115
  Serious: Yes (Other)
  Sender: SANDOZ
  Company Number: CA-002147023-NVSC2022CA276731

PATIENT
  Age: 63 Year
  Sex: Female

DRUGS (1)
  1. HYRIMOZ [Suspect]
     Active Substance: ADALIMUMAB-ADAZ
     Indication: Ankylosing spondylitis
     Dosage: 40 MG, Q2W, PRE-FILLED SYRINGE
     Route: 058
     Dates: start: 20220411

REACTIONS (8)
  - Haematochezia [Unknown]
  - Tooth disorder [Unknown]
  - Musculoskeletal stiffness [Unknown]
  - Constipation [Unknown]
  - Abdominal mass [Unknown]
  - COVID-19 [Recovering/Resolving]
  - General physical health deterioration [Unknown]
  - Injection site pain [Unknown]

NARRATIVE: CASE EVENT DATE: 20241101
